FAERS Safety Report 9321645 (Version 2)
Quarter: 2013Q2

REPORT INFORMATION
  Report Type: Spontaneous
  Country: US (occurrence: US)
  Receive Date: 20130531
  Receipt Date: 20130607
  Transmission Date: 20140414
  Serious: Yes (Death, Hospitalization)
  Sender: FDA-Public Use
  Company Number: US-ACTELION-A-NJ2013-83984

PATIENT
  Age: 75 Year
  Sex: Female

DRUGS (2)
  1. VENTAVIS [Suspect]
     Indication: PULMONARY ARTERIAL HYPERTENSION
     Dosage: UNK
     Route: 055
     Dates: end: 20130524
  2. SILDENAFIL [Concomitant]

REACTIONS (3)
  - Cardiac failure [Fatal]
  - Aortic stenosis [Fatal]
  - Dyspnoea [Unknown]
